FAERS Safety Report 18619913 (Version 1)
Quarter: 2020Q4

REPORT INFORMATION
  Report Type: Spontaneous
  Country: CN (occurrence: CN)
  Receive Date: 20201215
  Receipt Date: 20201215
  Transmission Date: 20210114
  Serious: Yes (Other)
  Sender: FDA-Public Use
  Company Number: CN-PFIZER INC-2020490166

PATIENT
  Age: 62 Year
  Sex: Female

DRUGS (2)
  1. SULPERAZON [Suspect]
     Active Substance: CEFOPERAZONE SODIUM\SULBACTAM SODIUM
     Indication: FEBRILE INFECTION
     Dosage: 2 G, 3X/DAY
     Route: 041
     Dates: start: 20201011, end: 20201013
  2. TAZOCIN [Suspect]
     Active Substance: PIPERACILLIN SODIUM\TAZOBACTAM SODIUM
     Indication: FEBRILE INFECTION
     Dosage: 4.5 G, 3X/DAY
     Route: 041
     Dates: start: 20201010, end: 20201011

REACTIONS (4)
  - Rash maculo-papular [Recovering/Resolving]
  - Off label use [Unknown]
  - Drug eruption [Recovering/Resolving]
  - Rash pruritic [Recovering/Resolving]

NARRATIVE: CASE EVENT DATE: 20201011
